FAERS Safety Report 5842210-2 (Version None)
Quarter: 2008Q3

REPORT INFORMATION
  Report Type: 
  Country: None (occurrence: None)
  Receive Date: 20080812
  Receipt Date: 20080731
  Transmission Date: 20090109
  Serious: Yes (Hospitalization)
  Sender: FDA-Public Use
  Company Number: GB-BAUSCH-2008BL003334

PATIENT
  Age: 77 Year
  Sex: Female

DRUGS (8)
  1. PREDNISOLONE [Suspect]
     Indication: DRUG USE FOR UNKNOWN INDICATION
     Dates: start: 20060717, end: 20060723
  2. SERETIDE ^GLAXO WELLCOME^ [Suspect]
     Indication: DRUG USE FOR UNKNOWN INDICATION
  3. CO-AMILOFRUSE [Concomitant]
  4. COMBIVENT /GFR/ [Concomitant]
  5. DIAZEPAM [Concomitant]
  6. LEVOTHYROXINE SODIUM [Concomitant]
  7. PAROXETINE HCL [Concomitant]
  8. PHYLLOCONTIN [Concomitant]

REACTIONS (2)
  - LUMBAR VERTEBRAL FRACTURE [None]
  - OSTEOPOROSIS [None]
